FAERS Safety Report 4573235-5 (Version None)
Quarter: 2005Q1

REPORT INFORMATION
  Report Type: 
  Country: None (occurrence: None)
  Receive Date: 20050208
  Receipt Date: 20040729
  Transmission Date: 20050727
  Serious: No
  Sender: FDA-Public Use
  Company Number: US-GLAXOSMITHKLINE-A0520304A

PATIENT
  Age: 16 Year
  Sex: Female

DRUGS (2)
  1. PAXIL [Suspect]
     Indication: DEPRESSION
     Dosage: 20MG PER DAY
     Route: 048
     Dates: start: 20040723
  2. NO CONCURRENT MEDICATION [Concomitant]

REACTIONS (3)
  - HYPERHIDROSIS [None]
  - PHOTOSENSITIVITY REACTION [None]
  - PUPILLARY REFLEX IMPAIRED [None]
